FAERS Safety Report 8014484 (Version 2)
Quarter: 2013Q2

REPORT INFORMATION
  Report Type: Report from Study
  Country: US (occurrence: US)
  Receive Date: 20110629
  Receipt Date: 20130626
  Transmission Date: 20140414
  Serious: Yes (Life-Threatening)
  Sender: FDA-Public Use
  Company Number: US-JNJFOC-20110610247

PATIENT
  Age: 13 Year
  Sex: Female
  Weight: 32 kg

DRUGS (3)
  1. INFLIXIMAB, RECOMBINANT [Suspect]
     Indication: INFLAMMATORY BOWEL DISEASE
     Route: 042
     Dates: start: 20100420
  2. INFLIXIMAB, RECOMBINANT [Suspect]
     Indication: INFLAMMATORY BOWEL DISEASE
     Route: 042
     Dates: start: 20110412, end: 20110412
  3. ACETAMINOPHEN [Concomitant]
     Indication: PREMEDICATION
     Route: 065
     Dates: start: 20110412

REACTIONS (1)
  - Anaphylactic reaction [Recovered/Resolved]
